FAERS Safety Report 15881609 (Version 4)
Quarter: 2020Q2

REPORT INFORMATION
  Report Type: Spontaneous
  Country: US (occurrence: US)
  Receive Date: 20190128
  Receipt Date: 20200629
  Transmission Date: 20200713
  Serious: Yes (Disabling)
  Sender: FDA-Public Use
  Company Number: US-SA-2019SA019444

PATIENT

DRUGS (2)
  1. AUBAGIO [Suspect]
     Active Substance: TERIFLUNOMIDE
     Indication: MULTIPLE SCLEROSIS
     Dosage: 7 MG
     Dates: start: 20120117
  2. AUBAGIO [Suspect]
     Active Substance: TERIFLUNOMIDE
     Dosage: 7 MG, QD
     Route: 048
     Dates: start: 2019, end: 202004

REACTIONS (9)
  - Dizziness [Unknown]
  - Gait disturbance [Unknown]
  - Paraesthesia [Unknown]
  - Nervousness [Unknown]
  - Product dose omission [Unknown]
  - Loss of personal independence in daily activities [Unknown]
  - Tremor [Unknown]
  - Hypoaesthesia [Unknown]
  - Somnolence [Unknown]

NARRATIVE: CASE EVENT DATE: 20190117
